FAERS Safety Report 17590296 (Version 1)
Quarter: 2020Q1

REPORT INFORMATION
  Report Type: Spontaneous
  Country: US (occurrence: US)
  Receive Date: 20200327
  Receipt Date: 20200327
  Transmission Date: 20200409
  Serious: Yes (Life-Threatening, Other)
  Sender: FDA-Public Use
  Company Number: None

PATIENT
  Age: 53 Year
  Sex: Male
  Weight: 77.4 kg

DRUGS (14)
  1. LEVOTHYROXINE SODIUM. [Concomitant]
     Active Substance: LEVOTHYROXINE SODIUM
  2. MONTELUKAST [Concomitant]
     Active Substance: MONTELUKAST SODIUM
  3. PSEUDOEPHEDRINE HYROCHLORIDE [Concomitant]
  4. TRAZODONE HCL 150 MG [Suspect]
     Active Substance: TRAZODONE HYDROCHLORIDE
     Indication: INSOMNIA
     Dosage: ?          QUANTITY:30 TABLET(S);?
     Route: 048
  5. CYCLOBENZAPRINE. [Concomitant]
     Active Substance: CYCLOBENZAPRINE
  6. ALBUTERNOL [Concomitant]
  7. TRAZODONE [Concomitant]
     Active Substance: TRAZODONE HYDROCHLORIDE
  8. ALBUTERNOL AND IPRATROPIUM BROMIDE [Concomitant]
  9. LISINOPRIL. [Concomitant]
     Active Substance: LISINOPRIL
  10. TESTOSTERONE CYPIONATE. [Concomitant]
     Active Substance: TESTOSTERONE CYPIONATE
  11. OXYCODONE [Concomitant]
     Active Substance: OXYCODONE
  12. FOLIC ACID. [Concomitant]
     Active Substance: FOLIC ACID
  13. BUPROPION. [Concomitant]
     Active Substance: BUPROPION
  14. OXYMORPHONE [Concomitant]
     Active Substance: OXYMORPHONE

REACTIONS (5)
  - Choking [None]
  - Product physical issue [None]
  - Foreign body in respiratory tract [None]
  - Product substitution issue [None]
  - Insurance issue [None]

NARRATIVE: CASE EVENT DATE: 20200326
